FAERS Safety Report 7894159-1 (Version None)
Quarter: 2011Q4

REPORT INFORMATION
  Report Type: 
  Country: None (occurrence: None)
  Receive Date: 20111104
  Receipt Date: 20111102
  Transmission Date: 20120403
  Serious: Yes (Other)
  Sender: FDA-Public Use
  Company Number: US-PFIZER INC-2010128236

PATIENT
  Sex: Male
  Weight: 95.254 kg

DRUGS (8)
  1. VALIUM [Concomitant]
     Dosage: UNK
  2. AMBIEN [Concomitant]
     Dosage: UNK
     Dates: end: 20100801
  3. NEURONTIN [Suspect]
     Indication: HYPOAESTHESIA
  4. LYRICA [Suspect]
     Indication: SCIATIC NERVE NEUROPATHY
     Dosage: 300 MG, 2X/DAY
     Dates: start: 20100101
  5. AMITRIPTYLINE [Concomitant]
  6. METHADONE [Concomitant]
     Dosage: UNK
     Dates: end: 20100801
  7. NEURONTIN [Suspect]
     Indication: SCIATIC NERVE NEUROPATHY
     Dosage: 800 MG ONCE OR TWICE DAILY
     Dates: start: 20090101, end: 20090101
  8. LYRICA [Suspect]
     Indication: HYPOAESTHESIA

REACTIONS (3)
  - SUICIDE ATTEMPT [None]
  - URINARY RETENTION [None]
  - DRUG INEFFECTIVE [None]
